FAERS Safety Report 18935343 (Version 1)
Quarter: 2021Q1

REPORT INFORMATION
  Report Type: Spontaneous
  Country: US (occurrence: US)
  Receive Date: 20210224
  Receipt Date: 20210224
  Transmission Date: 20210420
  Serious: No
  Sender: FDA-Public Use
  Company Number: US-TERSERA THERAPEUTICS LLC-2019TRS003009

PATIENT

DRUGS (4)
  1. PRIALT [Suspect]
     Active Substance: ZICONOTIDE ACETATE
     Indication: MOVEMENT DISORDER
     Dosage: UNK
     Route: 037
     Dates: start: 20140618
  2. BACLOFEN. [Suspect]
     Active Substance: BACLOFEN
     Dosage: 500.7 MCG,QD (17% INCREASE)
     Route: 065
  3. BACLOFEN. [Suspect]
     Active Substance: BACLOFEN
     Indication: MOVEMENT DISORDER
     Dosage: UNK
     Route: 065
     Dates: start: 2007
  4. PRIALT [Suspect]
     Active Substance: ZICONOTIDE ACETATE
     Dosage: 1.317 MCG, QD (17% INCREASE) (CONCENTRATION 5.0 MCG/ML)
     Route: 037

REACTIONS (5)
  - Muscle spasticity [Not Recovered/Not Resolved]
  - Incorrect dose administered by device [Not Recovered/Not Resolved]
  - Off label use [Unknown]
  - Withdrawal syndrome [Unknown]
  - Product use in unapproved indication [Unknown]

NARRATIVE: CASE EVENT DATE: 20191019
